FAERS Safety Report 12867449 (Version 1)
Quarter: 2016Q4

REPORT INFORMATION
  Report Type: Report from Study
  Country: CA (occurrence: CA)
  Receive Date: 20161020
  Receipt Date: 20161020
  Transmission Date: 20170207
  Serious: Yes (Other)
  Sender: FDA-Public Use
  Company Number: CA-HLSUS-2016-CA-000404

PATIENT
  Age: 60 Year
  Sex: Male
  Weight: 79 kg

DRUGS (1)
  1. CLOZARIL [Suspect]
     Active Substance: CLOZAPINE
     Route: 048
     Dates: start: 20160802, end: 20160824

REACTIONS (5)
  - Gait disturbance [Recovered/Resolved]
  - Confusional state [Recovered/Resolved]
  - Fall [Recovered/Resolved]
  - Aggression [Unknown]
  - Sedation [Unknown]

NARRATIVE: CASE EVENT DATE: 20160819
